FAERS Safety Report 6529526-1 (Version None)
Quarter: 2010Q1

REPORT INFORMATION
  Report Type: 
  Country: None (occurrence: None)
  Receive Date: 20100104
  Receipt Date: 20091224
  Transmission Date: 20100710
  Serious: Yes (Death, Hospitalization)
  Sender: FDA-Public Use
  Company Number: 2009EU004925

PATIENT
  Age: 43 Year
  Sex: Male

DRUGS (17)
  1. PROGRAF [Suspect]
     Dosage: 0.5 MG, BID, ORAL
     Route: 048
     Dates: start: 20061001
  2. CERTICAN [Suspect]
     Dosage: 1 MG, /D, ORAL
     Route: 048
     Dates: start: 20090827
  3. PREDNISOLONE [Suspect]
     Dosage: 20 MG, /D, ORAL ; 130 MG, /D
     Route: 048
     Dates: start: 20091012, end: 20091013
  4. PREDNISOLONE [Suspect]
     Dosage: 20 MG, /D, ORAL ; 130 MG, /D
     Route: 048
     Dates: start: 20090815
  5. CARBOPLATIN [Suspect]
     Dosage: /D, IV NOS
     Route: 042
     Dates: start: 20091013, end: 20091013
  6. PAXENE [Suspect]
     Dosage: IV NOS
     Route: 042
     Dates: start: 20091013, end: 20091013
  7. LAMIVUDINE [Concomitant]
  8. HEPSERA [Concomitant]
  9. LYRICA [Concomitant]
  10. ATARAX [Concomitant]
  11. CALCIUM W/VIT.D3 (CALCIUM, COLECALCIFEROL) [Concomitant]
  12. IMOVANE (ZOPICLONE) [Concomitant]
  13. PROPRANOLOL [Concomitant]
  14. IRBESARTAN [Concomitant]
  15. INEXIUM (ESOMEPRAZOLE SODIUM) [Concomitant]
  16. TRAMADOL HCL [Concomitant]
  17. PRIMPERAN TAB [Concomitant]

REACTIONS (9)
  - CARDIO-RESPIRATORY ARREST [None]
  - CYTOMEGALOVIRUS INFECTION [None]
  - HAEMOGLOBIN DECREASED [None]
  - HAEMOPTYSIS [None]
  - MALNUTRITION [None]
  - NEUTROPHIL PERCENTAGE INCREASED [None]
  - PLATELET COUNT DECREASED [None]
  - PNEUMOCYSTIS JIROVECI PNEUMONIA [None]
  - WEIGHT DECREASED [None]
